FAERS Safety Report 6230889-5 (Version None)
Quarter: 2009Q2

REPORT INFORMATION
  Report Type: 
  Country: None (occurrence: None)
  Receive Date: 20090616
  Receipt Date: 20090604
  Transmission Date: 20091009
  Serious: Yes (Other)
  Sender: FDA-Public Use
  Company Number: PHHY2009US14332

PATIENT
  Sex: Female
  Weight: 95.6 kg

DRUGS (11)
  1. EXJADE [Suspect]
     Indication: SICKLE CELL ANAEMIA
     Dosage: 2000 MG, QD
     Route: 048
     Dates: start: 20081211
  2. EXJADE [Suspect]
     Indication: IRON OVERLOAD
  3. HYDROXYUREA [Concomitant]
     Indication: SICKLE CELL ANAEMIA
     Dosage: 500 MG, BID
     Dates: start: 20081111
  4. CYANOCOBALAMIN [Concomitant]
     Indication: VITAMIN B12 DEFICIENCY
     Dosage: 250 MG, QD
     Dates: start: 20090306
  5. FOLIC ACID [Concomitant]
     Indication: SICKLE CELL ANAEMIA
     Dosage: 1 MG, QD INDEFINITELY
  6. NUVARING [Suspect]
     Indication: CONTRACEPTION
     Dosage: 1, PER MONTH
     Route: 067
  7. ZOFRAN [Concomitant]
  8. BENADRYL ^ACHE^ [Concomitant]
  9. MULTI-VITAMINS [Concomitant]
  10. DOCUSATE [Concomitant]
  11. FAMOTIDINE [Concomitant]

REACTIONS (3)
  - HAEMOGLOBIN DECREASED [None]
  - MENSTRUATION IRREGULAR [None]
  - SICKLE CELL ANAEMIA WITH CRISIS [None]
